FAERS Safety Report 7449020-3 (Version None)
Quarter: 2011Q2

REPORT INFORMATION
  Report Type: 
  Country: None (occurrence: None)
  Receive Date: 20110429
  Receipt Date: 20090707
  Transmission Date: 20111010
  Serious: Yes (Other)
  Sender: FDA-Public Use
  Company Number: DE-GENENTECH-317741

PATIENT
  Age: 80 Year

DRUGS (1)
  1. LUCENTIS [Suspect]
     Indication: MACULAR DEGENERATION
     Dosage: UNK
     Route: 031
     Dates: start: 20080902

REACTIONS (12)
  - RENAL FAILURE [None]
  - VISUAL IMPAIRMENT [None]
  - BRONCHITIS [None]
  - CARDIAC DISORDER [None]
  - VERTIGO [None]
  - BACTERIAL INFECTION [None]
  - VISUAL ACUITY REDUCED [None]
  - HERPES ZOSTER [None]
  - ECZEMA [None]
  - FEELING ABNORMAL [None]
  - MALAISE [None]
  - FALL [None]
